FAERS Safety Report 8072955-8 (Version None)
Quarter: 2012Q1

REPORT INFORMATION
  Report Type: 
  Country: None (occurrence: None)
  Receive Date: 20120126
  Receipt Date: 20120118
  Transmission Date: 20120608
  Serious: Yes (Hospitalization, Other)
  Sender: FDA-Public Use
  Company Number: US-ASTRAZENECA-2010SE60518

PATIENT
  Age: 58 Year
  Sex: Female

DRUGS (10)
  1. CRESTOR [Suspect]
     Route: 048
  2. TOPAMAX [Concomitant]
  3. VITAMIN D [Concomitant]
  4. LYRICA [Concomitant]
  5. POTASSIUM CHLORIDE [Concomitant]
  6. CYMBALTA [Concomitant]
  7. LEVOXYL [Concomitant]
  8. ALLOPURINOL [Concomitant]
  9. TOPROL-XL [Concomitant]
     Route: 048
  10. ADDERALL 5 [Concomitant]

REACTIONS (8)
  - PLEURAL EFFUSION [None]
  - APPARENT DEATH [None]
  - PANCREATITIS ACUTE [None]
  - POLYCYTHAEMIA [None]
  - RESPIRATORY FAILURE [None]
  - ABDOMINAL HERNIA [None]
  - DEEP VEIN THROMBOSIS [None]
  - PAIN [None]
